FAERS Safety Report 5032150-3 (Version None)
Quarter: 2006Q2

REPORT INFORMATION
  Report Type: 
  Country: None (occurrence: None)
  Receive Date: 20060619
  Receipt Date: 20060606
  Transmission Date: 20061013
  Serious: Yes (Hospitalization)
  Sender: FDA-Public Use
  Company Number: 2006BI008149

PATIENT
  Age: 38 Year
  Sex: Female
  Weight: 72.1219 kg

DRUGS (3)
  1. AVONEX [Suspect]
     Indication: MULTIPLE SCLEROSIS
     Dosage: 30 UG;QW;IM
     Route: 030
     Dates: start: 19990101, end: 20010101
  2. AVONEX [Suspect]
     Indication: MULTIPLE SCLEROSIS
     Dosage: 30 UG;QW;IM
     Route: 030
     Dates: start: 20051101
  3. MULTIPLE MEDICATIONS [Concomitant]

REACTIONS (4)
  - BIPOLAR I DISORDER [None]
  - INJECTION SITE PAIN [None]
  - PYREXIA [None]
  - THROMBOSIS [None]
